FAERS Safety Report 6772989-7 (Version None)
Quarter: 2010Q2

REPORT INFORMATION
  Report Type: 
  Country: None (occurrence: None)
  Receive Date: 20100616
  Receipt Date: 20100607
  Transmission Date: 20101027
  Serious: Yes (Disabling, Other)
  Sender: FDA-Public Use
  Company Number: US-PFIZER INC-2008078360

PATIENT
  Age: 34 Year
  Sex: Male

DRUGS (1)
  1. LIPITOR [Suspect]
     Indication: TYPE IIA HYPERLIPIDAEMIA
     Dosage: UNK
     Dates: start: 19980401

REACTIONS (3)
  - MITOCHONDRIAL DNA MUTATION [None]
  - NERVOUS SYSTEM DISORDER [None]
  - UBIQUINONE DECREASED [None]
